FAERS Safety Report 23870661 (Version 2)
Quarter: 2024Q2

REPORT INFORMATION
  Report Type: Spontaneous
  Country: US (occurrence: US)
  Receive Date: 20240518
  Receipt Date: 20240522
  Transmission Date: 20240716
  Serious: No
  Sender: FDA-Public Use
  Company Number: US-TEVA-VS-3194578

PATIENT
  Age: 34 Year
  Sex: Female

DRUGS (1)
  1. AMPHETAMINE SULFATE\DEXTROAMPHETAMINE [Suspect]
     Active Substance: AMPHETAMINE SULFATE\DEXTROAMPHETAMINE
     Indication: Product used for unknown indication
     Route: 065

REACTIONS (8)
  - Lethargy [Unknown]
  - Drug ineffective [Unknown]
  - Disturbance in attention [Unknown]
  - Loss of personal independence in daily activities [Unknown]
  - Somnolence [Unknown]
  - Paraesthesia [Unknown]
  - Attention deficit hyperactivity disorder [Unknown]
  - Bedridden [Unknown]
